FAERS Safety Report 21530137 (Version 4)
Quarter: 2022Q4

REPORT INFORMATION
  Report Type: Spontaneous
  Country: US (occurrence: US)
  Receive Date: 20221031
  Receipt Date: 20221208
  Transmission Date: 20230113
  Serious: Yes (Other)
  Sender: FDA-Public Use
  Company Number: US-GLAXOSMITHKLINE-US2022AMR154283

PATIENT

DRUGS (7)
  1. FLUTICASONE FUROATE [Interacting]
     Active Substance: FLUTICASONE FUROATE
     Indication: Product used for unknown indication
     Dosage: UNK
  2. FLUTICASONE PROPIONATE [Interacting]
     Active Substance: FLUTICASONE PROPIONATE
     Indication: Product used for unknown indication
     Dosage: UNK
  3. HERCEPTIN [Suspect]
     Active Substance: TRASTUZUMAB
     Indication: Product used for unknown indication
     Dosage: UNK
  4. TUKYSA [Suspect]
     Active Substance: TUCATINIB
     Indication: Breast cancer female
     Dosage: UNK
  5. TUKYSA [Suspect]
     Active Substance: TUCATINIB
     Dosage: UNK
  6. SODIUM BICARBONATE\SODIUM CHLORIDE\WATER [Suspect]
     Active Substance: SODIUM BICARBONATE\SODIUM CHLORIDE\WATER
     Indication: Stomatitis
     Dosage: UNK
  7. CAPECITABINE [Suspect]
     Active Substance: CAPECITABINE
     Indication: Product used for unknown indication
     Dosage: UNK

REACTIONS (16)
  - Neuropathy peripheral [Unknown]
  - Oral discomfort [Unknown]
  - Stomatitis [Recovering/Resolving]
  - Feeding disorder [Unknown]
  - Diarrhoea [Unknown]
  - Constipation [Unknown]
  - Fatigue [Recovered/Resolved]
  - Blister [Unknown]
  - Pain in extremity [Unknown]
  - Drug interaction [Unknown]
  - Oedema [Unknown]
  - Gait inability [Unknown]
  - Pain [Unknown]
  - Oedema peripheral [Unknown]
  - Palmar-plantar erythrodysaesthesia syndrome [Unknown]
  - Coronavirus infection [Unknown]
